FAERS Safety Report 5556040-2 (Version None)
Quarter: 2007Q4

REPORT INFORMATION
  Report Type: 
  Country: None (occurrence: None)
  Receive Date: 20071213
  Receipt Date: 20071127
  Transmission Date: 20080405
  Serious: Yes (Other)
  Sender: FDA-Public Use
  Company Number: CA-GILEAD-2007-0014488

PATIENT
  Age: 66 Year
  Sex: Male

DRUGS (8)
  1. VIREAD [Suspect]
     Indication: HEPATITIS B
  2. NORVASC [Concomitant]
  3. LASIX [Concomitant]
  4. NOVOLIN 50/50 [Concomitant]
  5. LIPITOR [Concomitant]
  6. ATENOLOL [Concomitant]
     Indication: HYPERTENSION
  7. ENALAPRIL [Concomitant]
  8. LAMIVUDINE [Concomitant]

REACTIONS (4)
  - CONFUSIONAL STATE [None]
  - DYSARTHRIA [None]
  - GAIT DISTURBANCE [None]
  - INCONTINENCE [None]
